FAERS Safety Report 13821885 (Version 2)
Quarter: 2017Q3

REPORT INFORMATION
  Report Type: Spontaneous
  Country: US (occurrence: US)
  Receive Date: 20170801
  Receipt Date: 20170804
  Transmission Date: 20171127
  Serious: No
  Sender: FDA-Public Use
  Company Number: US-PFIZER INC-2017326567

PATIENT
  Sex: Male

DRUGS (2)
  1. GABAPENTIN. [Suspect]
     Active Substance: GABAPENTIN
     Indication: BURNING SENSATION
  2. GABAPENTIN. [Suspect]
     Active Substance: GABAPENTIN
     Indication: DIABETIC NEUROPATHY

REACTIONS (2)
  - Product use in unapproved indication [Unknown]
  - Dyskinesia [Unknown]
